FAERS Safety Report 9432019 (Version 3)
Quarter: 2014Q1

REPORT INFORMATION
  Report Type: Report from Study
  Country: US (occurrence: US)
  Receive Date: 20130731
  Receipt Date: 20140123
  Transmission Date: 20141002
  Serious: Yes (Other)
  Sender: FDA-Public Use
  Company Number: US-009507513-1307USA016088

PATIENT
  Sex: 0

DRUGS (10)
  1. VICTRELIS [Suspect]
     Indication: HEPATITIS C
     Dosage: 800 MG, EVERY 7 TO 9 HOURS WITH FOOD FOR 44 WEEKS
     Route: 048
  2. REBETOL [Suspect]
     Indication: HEPATITIS C
     Dosage: 800 MG, FOR PATIENT WITH GFR MORE THAN OR EQUAL TO 60ML/MINUTE
     Route: 048
  3. REBETOL [Suspect]
     Dosage: 400-600MG PER DAY FOR PATIENT WITH GFR OF 30 TO 59ML/MINUTE
  4. REBETOL [Suspect]
     Dosage: THRICE WEEKLY UP TO 200 MG PER DAY FOR PATIENT WITH GFR LESS THAN 30 ML/MINUTE
  5. PEGASYS [Suspect]
     Indication: HEPATITIS C
     Dosage: 135 MICROGRAM, QW
     Route: 058
  6. CYCLOSPORINE [Suspect]
     Indication: PROPHYLAXIS AGAINST TRANSPLANT REJECTION
     Dosage: 1 DF, Q12H
  7. TACROLIMUS [Suspect]
     Indication: PROPHYLAXIS AGAINST TRANSPLANT REJECTION
     Dosage: 1 MG, BID
     Route: 048
  8. TACROLIMUS [Suspect]
     Dosage: 0.5 MG,
  9. TACROLIMUS [Suspect]
     Dosage: 0.5 MG, Q12H
     Route: 048
  10. TACROLIMUS [Suspect]
     Dosage: 0.5 MG, TWICE WEEKLY

REACTIONS (4)
  - Neutrophil count decreased [Unknown]
  - Ascites [Unknown]
  - Fluid overload [Unknown]
  - Anaemia [Unknown]
